FAERS Safety Report 10037125 (Version 1)
Quarter: 2014Q1

REPORT INFORMATION
  Report Type: Report from Study
  Country: US (occurrence: US)
  Receive Date: 20140326
  Receipt Date: 20140326
  Transmission Date: 20141002
  Serious: Yes (Other)
  Sender: FDA-Public Use
  Company Number: US-ROCHE-1365331

PATIENT
  Sex: Male
  Weight: 34.1 kg

DRUGS (9)
  1. NUTROPIN [Suspect]
     Indication: PRODUCT USED FOR UNKNOWN INDICATION
     Dosage: AT BED TIME
     Route: 058
     Dates: start: 20130102
  2. CELLCEPT [Suspect]
     Indication: PRODUCT USED FOR UNKNOWN INDICATION
     Route: 048
     Dates: start: 20130102
  3. PROGRAF [Concomitant]
     Route: 048
     Dates: start: 20130102
  4. GENTAMICIN [Concomitant]
     Route: 065
     Dates: start: 20101220
  5. CLONIDINE [Concomitant]
     Route: 062
     Dates: start: 20130102
  6. LABETALOL [Concomitant]
     Route: 048
     Dates: start: 20130102
  7. MAGNESIUM OXIDE [Concomitant]
     Route: 048
     Dates: start: 20130102
  8. OMEGA-3 POLYUNSATURATED FATTY ACIDS [Concomitant]
     Route: 048
     Dates: start: 20130102
  9. PREDNISONE [Concomitant]
     Route: 048
     Dates: start: 20130102

REACTIONS (4)
  - Polydipsia [Unknown]
  - Increased appetite [Unknown]
  - Hyperglycaemia [Unknown]
  - Gait disturbance [Unknown]
